FAERS Safety Report 7369032-8 (Version None)
Quarter: 2011Q1

REPORT INFORMATION
  Report Type: 
  Country: None (occurrence: None)
  Receive Date: 20110323
  Receipt Date: 20110318
  Transmission Date: 20110831
  Serious: Yes (Hospitalization, Other)
  Sender: FDA-Public Use
  Company Number: GB-PFIZER INC-2011060951

PATIENT
  Age: 51 Year
  Sex: Female
  Weight: 50 kg

DRUGS (4)
  1. MORPHINE [Concomitant]
  2. SILDENAFIL CITRATE [Suspect]
     Indication: PULMONARY FIBROSIS
     Dosage: 10 MG, UNK
     Route: 042
     Dates: start: 20110211, end: 20110214
  3. RITUXIMAB [Suspect]
     Indication: LYMPHOMA
  4. MIDAZOLAM [Concomitant]

REACTIONS (2)
  - PULMONARY FIBROSIS [None]
  - HYPOTENSION [None]
